FAERS Safety Report 22227813 (Version 1)
Quarter: 2023Q2

REPORT INFORMATION
  Report Type: Spontaneous
  Country: PL (occurrence: PL)
  Receive Date: 20230419
  Receipt Date: 20230419
  Transmission Date: 20230722
  Serious: Yes (Other)
  Sender: FDA-Public Use
  Company Number: PL-AMGEN-POLSP2023063398

PATIENT
  Age: 70 Year
  Sex: Male

DRUGS (4)
  1. VECTIBIX [Suspect]
     Active Substance: PANITUMUMAB
     Indication: Colorectal cancer
     Dosage: UNK
     Route: 065
     Dates: start: 20210811
  2. LEUCOVORIN [Suspect]
     Active Substance: LEUCOVORIN
     Indication: Colorectal cancer
     Dosage: UNK
     Route: 065
     Dates: start: 20210811
  3. FLUOROURACIL [Suspect]
     Active Substance: FLUOROURACIL
     Indication: Colorectal cancer
     Dosage: UNK
     Route: 065
     Dates: start: 20210811
  4. IRINOTECAN [Suspect]
     Active Substance: IRINOTECAN
     Indication: Colorectal cancer
     Dosage: UNK
     Route: 065
     Dates: start: 20210811

REACTIONS (13)
  - Renal failure [Unknown]
  - Electrolyte imbalance [Unknown]
  - Inflammation [Unknown]
  - Obstruction [Unknown]
  - Quality of life decreased [Recovering/Resolving]
  - General physical health deterioration [Unknown]
  - Skin lesion [Unknown]
  - Decreased appetite [Unknown]
  - Weight decreased [Recovering/Resolving]
  - Hypomagnesaemia [Unknown]
  - Asthenia [Unknown]
  - Diarrhoea [Unknown]
  - Dry skin [Unknown]
